FAERS Safety Report 11681668 (Version 1)
Quarter: 2015Q4

REPORT INFORMATION
  Report Type: Spontaneous
  Country: US (occurrence: None)
  Receive Date: 20151028
  Receipt Date: 20151028
  Transmission Date: 20160304
  Serious: Yes (Hospitalization)
  Sender: FDA-Public Use
  Company Number: None

PATIENT
  Age: 72 Year
  Sex: Male

DRUGS (1)
  1. MYCOPHENOLATE 500 MG TEVA USA [Suspect]
     Active Substance: MYCOPHENOLATE MOFETIL
     Indication: NEPHRITIS
     Route: 048
     Dates: start: 20120725, end: 20151007

REACTIONS (2)
  - Internal haemorrhage [None]
  - Activities of daily living impaired [None]

NARRATIVE: CASE EVENT DATE: 20151007
